FAERS Safety Report 6994361-7 (Version None)
Quarter: 2010Q3

REPORT INFORMATION
  Report Type: 
  Country: None (occurrence: None)
  Receive Date: 20100917
  Receipt Date: 20100908
  Transmission Date: 20110219
  Serious: Yes (Death, Hospitalization)
  Sender: FDA-Public Use
  Company Number: US-AMGEN-QUU429123

PATIENT
  Sex: Male
  Weight: 78.1 kg

DRUGS (2)
  1. NPLATE [Suspect]
     Indication: IDIOPATHIC THROMBOCYTOPENIC PURPURA
     Route: 058
     Dates: start: 20100219, end: 20100402
  2. CORTICOSTEROID NOS [Concomitant]

REACTIONS (2)
  - BRONCHITIS [None]
  - RESPIRATORY FAILURE [None]
